FAERS Safety Report 8808697 (Version 1)
Quarter: 2012Q4

REPORT INFORMATION
  Report Type: Spontaneous
  Country: IN (occurrence: None)
  Receive Date: 20120921
  Receipt Date: 20120921
  Transmission Date: 20130627
  Serious: Yes (Death, Other)
  Sender: FDA-Public Use
  Company Number: 2012P1056301

PATIENT
  Sex: Male
  Weight: 1.5 kg

DRUGS (1)
  1. DICLOFENAC [Suspect]
     Route: 064

REACTIONS (5)
  - Neonatal respiratory distress syndrome [None]
  - Maternal drugs affecting foetus [None]
  - Peritoneal dialysis [None]
  - Peritonitis [None]
  - Renal failure neonatal [None]
